FAERS Safety Report 18904181 (Version 1)
Quarter: 2021Q1

REPORT INFORMATION
  Report Type: Spontaneous
  Country: BE (occurrence: BE)
  Receive Date: 20210217
  Receipt Date: 20210217
  Transmission Date: 20210420
  Serious: Yes (Other)
  Sender: FDA-Public Use
  Company Number: BE-ASTRAZENECA-2021A051265

PATIENT
  Sex: Female

DRUGS (1)
  1. TAGRISSO [Suspect]
     Active Substance: OSIMERTINIB
     Indication: NON-SMALL CELL LUNG CANCER
     Route: 048

REACTIONS (7)
  - Hypotension [Recovered/Resolved]
  - Mucosal inflammation [Recovered/Resolved]
  - Face oedema [Recovered/Resolved]
  - Diarrhoea [Recovered/Resolved]
  - Livedo reticularis [Recovered/Resolved]
  - Rash [Recovered/Resolved]
  - Vasculitis [Recovered/Resolved]
